FAERS Safety Report 9681961 (Version 2)
Quarter: 2013Q4

REPORT INFORMATION
  Report Type: Spontaneous
  Country: US (occurrence: US)
  Receive Date: 20131111
  Receipt Date: 20131119
  Transmission Date: 20140711
  Serious: Yes (Disabling, Other)
  Sender: FDA-Public Use
  Company Number: US-PFIZER INC-2013320785

PATIENT
  Age: 59 Year
  Sex: Male
  Weight: 109 kg

DRUGS (9)
  1. NORVASC [Suspect]
     Indication: HYPERTENSION
     Dosage: 5 MG, 1X/DAY
  2. NORVASC [Suspect]
     Indication: BICUSPID AORTIC VALVE
  3. ALTACE [Suspect]
     Indication: HYPERTENSION
     Dosage: 10 MG, 1X/DAY
  4. ALTACE [Suspect]
     Indication: BICUSPID AORTIC VALVE
  5. EFFEXOR XR [Suspect]
     Indication: DEPRESSION
     Dosage: 225MG,1X/DAY
     Route: 048
     Dates: end: 2013
  6. EFFEXOR XR [Suspect]
     Indication: ANXIETY
  7. AVODART [Concomitant]
     Indication: BENIGN PROSTATIC HYPERPLASIA
     Dosage: 0.5 MG, 1X/DAY
  8. SIMVASTATIN [Concomitant]
     Indication: BLOOD CHOLESTEROL ABNORMAL
     Dosage: 10 MG, 1X/DAY
  9. NEXIUM [Concomitant]
     Dosage: 40 MG, 1X/DAY

REACTIONS (1)
  - Joint injury [Unknown]
